FAERS Safety Report 10153395 (Version 1)
Quarter: 2014Q2

REPORT INFORMATION
  Report Type: Spontaneous
  Country: US (occurrence: US)
  Receive Date: 20140505
  Receipt Date: 20140505
  Transmission Date: 20141212
  Serious: No
  Sender: FDA-Public Use
  Company Number: US-ASTRAZENECA-2014SE10532

PATIENT
  Sex: Female

DRUGS (1)
  1. OMEPRAZOLE DR [Suspect]
     Indication: GASTROOESOPHAGEAL REFLUX DISEASE
     Dosage: GENERIC 40 MG UNKNOWN
     Route: 065

REACTIONS (2)
  - Bronchitis [Unknown]
  - Cough [Unknown]
